FAERS Safety Report 15614186 (Version 4)
Quarter: 2019Q2

REPORT INFORMATION
  Report Type: Spontaneous
  Country: US (occurrence: US)
  Receive Date: 20181113
  Receipt Date: 20190509
  Transmission Date: 20190711
  Serious: No
  Sender: FDA-Public Use
  Company Number: US-PFIZER INC-2018456245

PATIENT
  Age: 55 Year
  Sex: Male

DRUGS (2)
  1. XELJANZ XR [Suspect]
     Active Substance: TOFACITINIB CITRATE
     Dosage: 11 MG, 1X/DAY
     Route: 048
     Dates: start: 20190101
  2. XELJANZ XR [Suspect]
     Active Substance: TOFACITINIB CITRATE
     Indication: RHEUMATOID ARTHRITIS
     Dosage: 11 MG, DAILY
     Route: 048
     Dates: start: 20181031

REACTIONS (6)
  - Abdominal discomfort [Unknown]
  - White blood cell count decreased [Unknown]
  - Pre-existing condition improved [Unknown]
  - Bronchitis [Unknown]
  - Therapeutic response unexpected [Unknown]
  - Lipids increased [Unknown]

NARRATIVE: CASE EVENT DATE: 20181031
